FAERS Safety Report 24868057 (Version 1)
Quarter: 2025Q1

REPORT INFORMATION
  Report Type: Spontaneous
  Country: US (occurrence: None)
  Receive Date: 20250120
  Receipt Date: 20250120
  Transmission Date: 20250409
  Serious: Yes (Disabling, Other)
  Sender: FDA-CTU
  Company Number: None

PATIENT
  Age: 58 Year
  Sex: Female
  Weight: 76.5 kg

DRUGS (21)
  1. CLENPIQ [Suspect]
     Active Substance: ANHYDROUS CITRIC ACID\MAGNESIUM OXIDE\SODIUM PICOSULFATE
     Indication: Bowel preparation
     Route: 048
     Dates: start: 20250107, end: 20250108
  2. ALPRAZOLAM [Concomitant]
     Active Substance: ALPRAZOLAM
  3. LEVOTHYROXINE [Concomitant]
     Active Substance: LEVOTHYROXINE
  4. LOSARTAN POTASSIUM [Concomitant]
     Active Substance: LOSARTAN POTASSIUM
  5. Pnatoprasole sodium [Concomitant]
  6. CLONIDINE [Concomitant]
     Active Substance: CLONIDINE
  7. TOPIRAMATE [Concomitant]
     Active Substance: TOPIRAMATE
  8. EPINEPHRINE [Concomitant]
     Active Substance: EPINEPHRINE
  9. ALBUTEROL [Concomitant]
     Active Substance: ALBUTEROL
  10. Fluovinolone Oil [Concomitant]
  11. METHOCARBAMOL [Concomitant]
     Active Substance: METHOCARBAMOL
  12. TRAMADOL [Concomitant]
     Active Substance: TRAMADOL
  13. Hydrocodone/Acetamin [Concomitant]
  14. Vit A [Concomitant]
  15. VITAMIN B12 [Concomitant]
     Active Substance: CYANOCOBALAMIN
  16. VITAMIN C [Concomitant]
     Active Substance: ASCORBIC ACID
  17. VITAMIN D3 [Concomitant]
     Active Substance: CHOLECALCIFEROL
  18. VITAMIN E [Concomitant]
     Active Substance: .ALPHA.-TOCOPHEROL
  19. MAGNESIUM GLYCINATE [Concomitant]
     Active Substance: MAGNESIUM GLYCINATE
  20. DIETARY SUPPLEMENT [Concomitant]
     Active Substance: DIETARY SUPPLEMENT
  21. Frankinsence oil [Concomitant]

REACTIONS (9)
  - Nausea [None]
  - Abdominal pain upper [None]
  - Abdominal pain upper [None]
  - Dyspepsia [None]
  - Chemical burn [None]
  - Oral discomfort [None]
  - Tongue ulceration [None]
  - Erythema [None]
  - Urticaria [None]

NARRATIVE: CASE EVENT DATE: 20250107
